FAERS Safety Report 8909199 (Version 1)
Quarter: 2012Q4

REPORT INFORMATION
  Report Type: Spontaneous
  Country: GB (occurrence: None)
  Receive Date: 20121107
  Receipt Date: 20121107
  Transmission Date: 20130627
  Serious: Yes (Other)
  Sender: FDA-Public Use
  Company Number: AUR-APL-2012-04530

PATIENT
  Age: 13 Year
  Sex: Female

DRUGS (2)
  1. TOPIRAMATE (TOPIRAMATE) [Suspect]
     Indication: EPILEPSY
  2. CARBAMAZEPINE [Suspect]
     Indication: EPILEPSY

REACTIONS (1)
  - Drug ineffective [None]
